APPROVED DRUG PRODUCT: LIQUAMAR
Active Ingredient: PHENPROCOUMON
Strength: 3MG
Dosage Form/Route: TABLET;ORAL
Application: N011228 | Product #001
Applicant: ORGANON USA INC
Approved: Approved Prior to Jan 1, 1982 | RLD: No | RS: No | Type: DISCN